FAERS Safety Report 23647243 (Version 1)
Quarter: 2024Q1

REPORT INFORMATION
  Report Type: Spontaneous
  Country: JP (occurrence: JP)
  Receive Date: 20240319
  Receipt Date: 20240319
  Transmission Date: 20240409
  Serious: Yes (Other)
  Sender: FDA-Public Use
  Company Number: JP-STRIDES ARCOLAB LIMITED-2024SP003147

PATIENT
  Age: 81 Year
  Sex: Male

DRUGS (10)
  1. METHOTREXATE [Suspect]
     Active Substance: METHOTREXATE
     Indication: Precursor T-lymphoblastic leukaemia acute
     Dosage: 2.4 GRAM PER SQUARE METRE, CYCLICAL; RECEIVED AT 2.4 G/M2 ON DAY 1 OF THE CYCLE, UNDER SECOND COURSE
     Route: 065
  2. ETOPOSIDE [Suspect]
     Active Substance: ETOPOSIDE
     Indication: Precursor T-lymphoblastic leukaemia acute
     Dosage: 100 GRAM PER SQUARE METRE, CYCLICAL; RECEIVED AT 100G/M2 ON DAYS 1-3 OF THE CYCLE, UNDER FIRST COURS
     Route: 065
  3. ASPARAGINASE [Concomitant]
     Active Substance: ASPARAGINASE
     Indication: Precursor T-lymphoblastic leukaemia acute
     Dosage: UNK, CYCLICAL; RECEIVED AT 300U/M2 ON?DAYS 11, 13,16,18, AND 20 OF THE CYCLE, UNDER A STANDARD INDUC
     Route: 065
  4. CYCLOPHOSPHAMIDE [Concomitant]
     Active Substance: CYCLOPHOSPHAMIDE
     Indication: Precursor T-lymphoblastic leukaemia acute
     Dosage: 800 MILLIGRAM/SQ. METER, CYCLICAL; RECEIVED ON DAY1 OF THE CYCLE, UNDER STANDARD INDUCTION THERAPY
     Route: 065
  5. DAUNORUBICIN [Concomitant]
     Active Substance: DAUNORUBICIN
     Indication: Precursor T-lymphoblastic leukaemia acute
     Dosage: 30 MILLIGRAM/SQ. METER, CYCLICAL; RECEIVED ON DAY1 TO 3 OF THE CYCLE, UNDER STANDARD INDUCTION THERA
     Route: 065
  6. VINCRISTINE [Concomitant]
     Active Substance: VINCRISTINE
     Indication: Precursor T-lymphoblastic leukaemia acute
     Dosage: 1.3 MILLIGRAM/SQ. METER, CYCLICAL; RECEIVED ON DAYS 1,8,15 AND 22 OF THE CYCLE, UNDER STANDARD INDUC
     Route: 065
  7. VINCRISTINE [Concomitant]
     Active Substance: VINCRISTINE
     Dosage: 1.4 MILLIGRAM/SQ. METER; RECEIVED UNDER SECOND COURSE OF CONSOLIDATION THERAPY
     Route: 065
  8. PREDNISOLONE [Concomitant]
     Active Substance: PREDNISOLONE
     Indication: Precursor T-lymphoblastic leukaemia acute
     Dosage: 100 MILLIGRAM/KILOGRAM, CYCLICAL; RECEIVED ON DAYS -3 OF THE CYCLE, UNDER STANDARD INDUCTION THERAPY
     Route: 065
  9. CYTARABINE [Concomitant]
     Active Substance: CYTARABINE
     Indication: Precursor T-lymphoblastic leukaemia acute
     Dosage: 2.0 GRAM PER SQUARE METRE, CYCLICAL; RECEIVED AT 2.0G/M2 ON DAYS 1-3 OF THE CYCLE, UNDER FIRST COURS
     Route: 065
  10. DEXAMETHASONE [Concomitant]
     Active Substance: DEXAMETHASONE
     Indication: Precursor T-lymphoblastic leukaemia acute
     Dosage: UNK, CYCLICAL; RECEIVED AT 33G/KG OF BODY WEIGHT ON DAYS 1-3 OF THE CYCLE, UNDER FIRST COURSE OF CON
     Route: 065

REACTIONS (3)
  - Renal impairment [Unknown]
  - Immunosuppressant drug level increased [Unknown]
  - Off label use [Unknown]
